FAERS Safety Report 7048302-7 (Version None)
Quarter: 2010Q4

REPORT INFORMATION
  Report Type: 
  Country: None (occurrence: None)
  Receive Date: 20101014
  Receipt Date: 20101014
  Transmission Date: 20110411
  Serious: No
  Sender: FDA-Public Use
  Company Number: None

PATIENT
  Age: 49 Year
  Sex: Female
  Weight: 97.5234 kg

DRUGS (6)
  1. FERAHEME [Suspect]
     Indication: BLOOD IRON DECREASED
     Dates: start: 20100917, end: 20100917
  2. FERAHEME [Suspect]
     Indication: HAEMATOCRIT DECREASED
     Dates: start: 20100917, end: 20100917
  3. FERAHEME [Suspect]
     Indication: HAEMOGLOBIN DECREASED
     Dates: start: 20100917, end: 20100917
  4. FERAHEME [Suspect]
     Indication: BLOOD IRON DECREASED
     Dates: start: 20100920, end: 20100920
  5. FERAHEME [Suspect]
     Indication: HAEMATOCRIT DECREASED
     Dates: start: 20100920, end: 20100920
  6. FERAHEME [Suspect]
     Indication: HAEMOGLOBIN DECREASED
     Dates: start: 20100920, end: 20100920

REACTIONS (1)
  - RASH VESICULAR [None]
